FAERS Safety Report 6089056-0 (Version None)
Quarter: 2009Q1

REPORT INFORMATION
  Report Type: 
  Country: None (occurrence: None)
  Receive Date: 20090224
  Receipt Date: 20090217
  Transmission Date: 20090719
  Serious: Yes (Life-Threatening)
  Sender: FDA-Public Use
  Company Number: B0558459A

PATIENT
  Age: 27 Year
  Sex: Female

DRUGS (8)
  1. PAXIL [Suspect]
     Indication: TINNITUS
     Dosage: 10MG PER DAY
     Route: 048
     Dates: start: 20090130, end: 20090130
  2. HALCION [Suspect]
     Indication: INSOMNIA
     Route: 048
  3. AMOBAN [Suspect]
     Indication: INSOMNIA
     Route: 048
  4. LENDORMIN [Suspect]
     Indication: DRUG USE FOR UNKNOWN INDICATION
     Route: 048
  5. ADETPHOS [Suspect]
     Indication: SUDDEN HEARING LOSS
     Route: 048
     Dates: start: 20081219
  6. NEUQUINON [Suspect]
     Indication: SUDDEN HEARING LOSS
     Route: 048
     Dates: start: 20081219
  7. VITANEURIN [Suspect]
     Indication: SUDDEN HEARING LOSS
     Route: 048
     Dates: start: 20081219
  8. MERISLON [Suspect]
     Indication: SUDDEN HEARING LOSS
     Route: 048
     Dates: start: 20090129

REACTIONS (3)
  - CONTUSION [None]
  - DEPRESSED LEVEL OF CONSCIOUSNESS [None]
  - MEMORY IMPAIRMENT [None]
